FAERS Safety Report 4709641-5 (Version None)
Quarter: 2005Q3

REPORT INFORMATION
  Report Type: 
  Country: None (occurrence: None)
  Receive Date: 20050706
  Receipt Date: 20050706
  Transmission Date: 20060218
  Serious: Yes (Life-Threatening)
  Sender: FDA-Public Use
  Company Number: None

PATIENT
  Age: 81 Year
  Sex: Female
  Weight: 64.4108 kg

DRUGS (7)
  1. LEXAPRO [Suspect]
     Indication: DEPRESSION
     Dosage: 10 MG    DAILY   ORAL
     Route: 048
     Dates: start: 20050402, end: 20050403
  2. LASIX [Concomitant]
  3. NORVASC [Concomitant]
  4. K-DUR 10 [Concomitant]
  5. PREVACID [Concomitant]
  6. TOPROL-XL [Concomitant]
  7. COUMADIN [Concomitant]

REACTIONS (2)
  - GASTROINTESTINAL DISORDER [None]
  - NEUTROPENIA [None]
